FAERS Safety Report 25136892 (Version 1)
Quarter: 2025Q1

REPORT INFORMATION
  Report Type: Report from Study
  Country: CA (occurrence: CA)
  Receive Date: 20250328
  Receipt Date: 20250328
  Transmission Date: 20250408
  Serious: Yes (Death)
  Sender: AMGEN
  Company Number: CA-BEH-2025200308

PATIENT
  Age: 35 Year
  Sex: Female

DRUGS (1)
  1. AVACOPAN [Suspect]
     Active Substance: AVACOPAN
     Indication: Vasculitis
     Dosage: 10 MG, BID
     Route: 048

REACTIONS (2)
  - Groin pain [Fatal]
  - Off label use [Unknown]
